FAERS Safety Report 8997353 (Version 2)
Quarter: 2013Q1

REPORT INFORMATION
  Report Type: Report from Study
  Country: JP (occurrence: JP)
  Receive Date: 20130104
  Receipt Date: 20130217
  Transmission Date: 20140127
  Serious: Yes (Other)
  Sender: FDA-Public Use
  Company Number: JP-JNJFOC-20130100535

PATIENT
  Age: 44 Year
  Sex: Male
  Weight: 82 kg

DRUGS (10)
  1. SIMPONI [Suspect]
     Indication: RHEUMATOID ARTHRITIS
     Route: 058
     Dates: start: 20120517
  2. SIMPONI [Suspect]
     Indication: RHEUMATOID ARTHRITIS
     Route: 058
     Dates: start: 20121108
  3. METHOTREXATE [Concomitant]
     Indication: RHEUMATOID ARTHRITIS
     Dates: start: 200306
  4. LOXOPROFEN [Concomitant]
     Indication: RHEUMATOID ARTHRITIS
     Route: 048
  5. FELBINAC [Concomitant]
     Indication: RHEUMATOID ARTHRITIS
     Route: 062
  6. MECOBALAMIN [Concomitant]
     Indication: NEUROPATHY PERIPHERAL
  7. ALDIOXA [Concomitant]
     Indication: PROPHYLAXIS
     Route: 048
  8. FOLIC ACID [Concomitant]
     Indication: PROPHYLAXIS
  9. VOGLIBOSE [Concomitant]
     Route: 048
  10. ZOLPIDEM [Concomitant]
     Indication: INSOMNIA
     Route: 048

REACTIONS (2)
  - Liver disorder [Recovered/Resolved]
  - Diabetes mellitus [Recovered/Resolved]
